FAERS Safety Report 7233317-6 (Version None)
Quarter: 2011Q1

REPORT INFORMATION
  Report Type: 
  Country: None (occurrence: None)
  Receive Date: 20110119
  Receipt Date: 20110113
  Transmission Date: 20110831
  Serious: Yes (Hospitalization)
  Sender: FDA-Public Use
  Company Number: DE-ELI_LILLY_AND_COMPANY-DE201101003529

PATIENT
  Age: 65 Year
  Sex: Male
  Weight: 60 kg

DRUGS (12)
  1. CISPLATIN [Suspect]
     Indication: HEAD AND NECK CANCER
     Dosage: 75 MG/M2, ON DAY 1 EVERY 21 DAYS
     Route: 042
     Dates: start: 20101227
  2. VITAMIN B-12 [Concomitant]
     Indication: PROPHYLAXIS
     Dates: start: 20101216
  3. PRAVASTATIN [Concomitant]
     Indication: PROPHYLAXIS
     Dates: start: 20101227
  4. ADVENTAN [Concomitant]
     Indication: ERYTHEMA
     Dates: start: 20110110
  5. LEVOFLOXACIN [Concomitant]
     Indication: PYREXIA
     Dates: start: 20110111
  6. CETUXIMAB [Suspect]
     Dosage: 250 MG/M2, WEEKLY (1/W)
  7. FOLIC ACID [Concomitant]
     Indication: PROPHYLAXIS
     Dates: start: 20101216
  8. PEMETREXED [Suspect]
     Indication: HEAD AND NECK CANCER
     Dosage: 500 MG/M2, ON DAY 1, EVERY 21 DAYS
     Route: 042
     Dates: start: 20101227
  9. CETUXIMAB [Suspect]
     Indication: HEAD AND NECK CANCER
     Dosage: LOADING DOSE OF 400MG/M2 ON DAY 1 OF CYCLE 1,
     Route: 042
     Dates: start: 20101227, end: 20101227
  10. SIMVASTATIN [Concomitant]
     Indication: PROPHYLAXIS
  11. MAGNESIUM VERLA N [Concomitant]
     Indication: HYPOMAGNESAEMIA
     Dates: start: 20110113
  12. DEXAMETHASONE [Concomitant]
     Indication: PROPHYLAXIS
     Dates: start: 20101226

REACTIONS (1)
  - SYNCOPE [None]
